FAERS Safety Report 4854802-8 (Version None)
Quarter: 2005Q4

REPORT INFORMATION
  Report Type: 
  Country: None (occurrence: None)
  Receive Date: 20051214
  Receipt Date: 20051214
  Transmission Date: 20060501
  Serious: Yes (Other)
  Sender: FDA-Public Use
  Company Number: None

PATIENT
  Age: 47 Year
  Sex: Female
  Weight: 79.3795 kg

DRUGS (4)
  1. NEXIUM [Suspect]
     Indication: DIARRHOEA
     Dosage: 40 MG 2 @ BREAKFAST
     Dates: start: 20051203
  2. REGLAN [Concomitant]
  3. PAMINE FORTE [Concomitant]
  4. ELAVIL [Concomitant]

REACTIONS (1)
  - DIARRHOEA [None]
